FAERS Safety Report 10891254 (Version 1)
Quarter: 2015Q1

REPORT INFORMATION
  Report Type: Spontaneous
  Country: US (occurrence: US)
  Receive Date: 20150306
  Receipt Date: 20150306
  Transmission Date: 20150721
  Serious: No
  Sender: FDA-Public Use
  Company Number: US-ASTRAZENECA-2015SE00590

PATIENT
  Sex: Female
  Weight: 108 kg

DRUGS (4)
  1. LANTUS [Concomitant]
     Active Substance: INSULIN GLARGINE
  2. BYDUREON [Suspect]
     Active Substance: EXENATIDE
     Indication: DIABETES MELLITUS
     Route: 058
     Dates: start: 20141120
  3. NOVOLOG [Concomitant]
     Active Substance: INSULIN ASPART
  4. METFORMIN [Concomitant]
     Active Substance: METFORMIN HYDROCHLORIDE

REACTIONS (4)
  - Injection site discolouration [Not Recovered/Not Resolved]
  - Drug dose omission [Unknown]
  - Injection site nodule [Not Recovered/Not Resolved]
  - Injection site swelling [Unknown]
